FAERS Safety Report 9789918 (Version 3)
Quarter: 2014Q1

REPORT INFORMATION
  Report Type: Spontaneous
  Country: IT (occurrence: None)
  Receive Date: 20131227
  Receipt Date: 20140122
  Transmission Date: 20141002
  Serious: Yes (Other)
  Sender: FDA-Public Use
  Company Number: AUR-APL-2013-10753

PATIENT
  Age: 74 Year
  Sex: Male

DRUGS (12)
  1. LEVOFLOXACIN [Suspect]
     Indication: BACTERIAL PROSTATITIS
     Route: 048
     Dates: start: 20131122, end: 20131123
  2. NERIXIA(NERIDRONIC ACID) [Concomitant]
  3. FOSAVANCE(FOSAVANCE) [Concomitant]
  4. SANDIMMUN NEORAL(CICLOSPORIN) [Concomitant]
  5. CELLCEPT(MYCOPHENOLATE MOFETIL) [Concomitant]
  6. MEPRAL(OMEPRAZOLE) [Concomitant]
  7. ZYLORIC(ALLOPURINOL) [Concomitant]
  8. CARDIOASPIRIN(ACETYLSALICYLIC ACID) [Concomitant]
  9. LYRICA(PREGABALIN) [Concomitant]
  10. LASIX(FUROSEMIDE) [Concomitant]
  11. CONGESCOR (BISOPROLOL) [Concomitant]
  12. OMNIC (TAMSULOSIN HYDROCHLORIDE) [Concomitant]

REACTIONS (2)
  - Musculoskeletal pain [None]
  - Tendonitis [None]
